FAERS Safety Report 7686643-0 (Version None)
Quarter: 2011Q3

REPORT INFORMATION
  Report Type: 
  Country: None (occurrence: None)
  Receive Date: 20110816
  Receipt Date: 20110816
  Transmission Date: 20111222
  Serious: Yes (Other)
  Sender: FDA-Public Use
  Company Number: None

PATIENT
  Age: 65 Year
  Sex: Female
  Weight: 83.914 kg

DRUGS (1)
  1. CHLORHEXIDINE GLUCONATE [Suspect]
     Indication: WOUND SECRETION
     Dosage: 15 ML SWISH IN MOUTH
     Route: 004
     Dates: start: 20110512, end: 20110512

REACTIONS (2)
  - ORAL DISCOMFORT [None]
  - GLOSSODYNIA [None]
